FAERS Safety Report 4663177-9 (Version None)
Quarter: 2005Q2

REPORT INFORMATION
  Report Type: 
  Country: None (occurrence: None)
  Receive Date: 20050513
  Receipt Date: 20050502
  Transmission Date: 20051028
  Serious: Yes (Other)
  Sender: FDA-Public Use
  Company Number: 2005BI002772

PATIENT
  Age: 61 Year
  Sex: Male

DRUGS (3)
  1. AVONEX [Suspect]
     Indication: MULTIPLE SCLEROSIS
     Dosage: 15 UG; QW; IM
     Route: 030
     Dates: start: 20010413, end: 20010413
  2. AMINOPYRIDINE [Concomitant]
  3. BACLOFEN [Concomitant]

REACTIONS (9)
  - ALANINE AMINOTRANSFERASE INCREASED [None]
  - ASPARTATE AMINOTRANSFERASE INCREASED [None]
  - BLOOD PRESSURE DIASTOLIC DECREASED [None]
  - DYSPNOEA [None]
  - HEART RATE INCREASED [None]
  - HYPERSENSITIVITY [None]
  - NAUSEA [None]
  - RESPIRATORY RATE INCREASED [None]
  - STEVENS-JOHNSON SYNDROME [None]
